FAERS Safety Report 7560261-7 (Version None)
Quarter: 2011Q2

REPORT INFORMATION
  Report Type: 
  Country: None (occurrence: None)
  Receive Date: 20110617
  Receipt Date: 20110617
  Transmission Date: 20111010
  Serious: Yes (Other)
  Sender: FDA-Public Use
  Company Number: None

PATIENT
  Age: 34 Year
  Sex: Male
  Weight: 108.8633 kg

DRUGS (1)
  1. CIPROFLOXACIN [Suspect]
     Indication: MENINGITIS
     Dosage: 500MG ONCE PO (ONE TIME DOSE)
     Route: 048

REACTIONS (6)
  - MUSCLE SPASMS [None]
  - ARTHRALGIA [None]
  - MUSCLE TWITCHING [None]
  - TENDONITIS [None]
  - INFLAMMATION [None]
  - TENDON RUPTURE [None]
